FAERS Safety Report 10262579 (Version 1)
Quarter: 2014Q2

REPORT INFORMATION
  Report Type: Spontaneous
  Country: IN (occurrence: IN)
  Receive Date: 20140626
  Receipt Date: 20140626
  Transmission Date: 20141212
  Serious: Yes (Death, Other)
  Sender: FDA-Public Use
  Company Number: IN-ASTELLAS-2014US007237

PATIENT
  Age: 35 Year
  Sex: Female

DRUGS (4)
  1. AMPHOTERICIN B [Suspect]
     Indication: OESOPHAGEAL CANDIDIASIS
     Dosage: 100UG/ML, IN 5% DEXTROSE
     Route: 042
  2. ZIDOVUDINE [Concomitant]
     Indication: PRODUCT USED FOR UNKNOWN INDICATION
     Dosage: UNK UNK, UNKNOWN FREQ.
     Route: 065
  3. STAVUDINE [Concomitant]
     Indication: PRODUCT USED FOR UNKNOWN INDICATION
     Dosage: UNK UNK, UNKNOWN FREQ.
     Route: 065
  4. NEVIRAPINE [Concomitant]
     Indication: PRODUCT USED FOR UNKNOWN INDICATION
     Dosage: UNK UNK, UNKNOWN FREQ.
     Route: 065

REACTIONS (1)
  - Generalised tonic-clonic seizure [Fatal]
